FAERS Safety Report 6720807-5 (Version None)
Quarter: 2010Q2

REPORT INFORMATION
  Report Type: 
  Country: None (occurrence: None)
  Receive Date: 20100512
  Receipt Date: 20100503
  Transmission Date: 20101027
  Serious: No
  Sender: FDA-Public Use
  Company Number: US-BIOGENIDEC-2010BI015165

PATIENT
  Age: 49 Year
  Sex: Female

DRUGS (2)
  1. TYSABRI [Suspect]
     Indication: MULTIPLE SCLEROSIS
     Route: 042
     Dates: start: 20031201, end: 20050201
  2. TYSABRI [Suspect]
     Route: 042
     Dates: start: 20070611

REACTIONS (4)
  - ARTHRITIS [None]
  - FALL [None]
  - GAIT DISTURBANCE [None]
  - SCIATICA [None]
